FAERS Safety Report 15546605 (Version 1)
Quarter: 2018Q4

REPORT INFORMATION
  Report Type: Spontaneous
  Country: US (occurrence: US)
  Receive Date: 20181018
  Receipt Date: 20181018
  Transmission Date: 20190205
  Serious: No
  Sender: FDA-Public Use
  Company Number: None

PATIENT
  Age: 51 Year
  Sex: Female
  Weight: 127.01 kg

DRUGS (3)
  1. OTEZLA [Suspect]
     Active Substance: APREMILAST
     Indication: PSORIASIS
     Dosage: ?          OTHER FREQUENCY:TWICE DAILY ;?
     Route: 058
     Dates: start: 201806
  2. SIMVASTATIN. [Concomitant]
     Active Substance: SIMVASTATIN
  3. STELARA [Suspect]
     Active Substance: USTEKINUMAB
     Indication: PSORIASIS
     Dosage: ?          OTHER FREQUENCY:DAY 0 OR 28 AS DIR;?
     Route: 058
     Dates: start: 201712

REACTIONS (3)
  - Condition aggravated [None]
  - Muscle spasms [None]
  - Neuralgia [None]
